FAERS Safety Report 17650105 (Version 8)
Quarter: 2021Q2

REPORT INFORMATION
  Report Type: Spontaneous
  Country: US (occurrence: US)
  Receive Date: 20200409
  Receipt Date: 20210510
  Transmission Date: 20210716
  Serious: Yes (Hospitalization)
  Sender: FDA-Public Use
  Company Number: US-PFIZER INC-2016545744

PATIENT
  Age: 54 Year
  Sex: Female
  Weight: 99.79 kg

DRUGS (12)
  1. MORPHINE [Concomitant]
     Active Substance: MORPHINE
     Indication: PAIN MANAGEMENT
     Dosage: UNK
  2. LYRICA [Suspect]
     Active Substance: PREGABALIN
     Indication: PAIN
     Dosage: 50 MG, 4X/DAY (50 MG EVERY 6 HOURS)
     Route: 048
     Dates: start: 20161007, end: 20161007
  3. MSIR [Concomitant]
     Active Substance: MORPHINE SULFATE
     Indication: PAIN
     Dosage: 30 MG, AS NEEDED (1 TABLET EVERY 4?6 HOURS, PRN, MAX. 4/DAY)
     Route: 048
     Dates: start: 20161007
  4. LYRICA [Suspect]
     Active Substance: PREGABALIN
     Dosage: 100 MG, 2X/DAY
  5. MORPHINE [Concomitant]
     Active Substance: MORPHINE
     Indication: NERVE INJURY
  6. LYRICA [Suspect]
     Active Substance: PREGABALIN
     Dosage: 100 MG, 4X/DAY (100 MG EVERY 6 HOURS)
     Route: 048
  7. MSIR [Concomitant]
     Active Substance: MORPHINE SULFATE
     Indication: POST LAMINECTOMY SYNDROME
  8. LYRICA [Suspect]
     Active Substance: PREGABALIN
     Dosage: 60 MG, 4X/DAY
  9. TIZANIDINE. [Concomitant]
     Active Substance: TIZANIDINE
     Dosage: 4 MG, 2X/DAY (TAKE ORALLY 1 TABLET BID, 2 TABS AT BEDTIME)
     Route: 048
     Dates: start: 20161007
  10. MS CONTIN [Concomitant]
     Active Substance: MORPHINE SULFATE
     Indication: PAIN
     Dosage: 30 MG, 3X/DAY (1 TABLET EVERY 8HRS)
     Route: 048
     Dates: start: 20161007
  11. LYRICA [Suspect]
     Active Substance: PREGABALIN
     Indication: NEURALGIA
     Dosage: 1 DF EVERY 6 HOUR (EVERY 6 HOURS)
     Route: 048
  12. MS CONTIN [Concomitant]
     Active Substance: MORPHINE SULFATE
     Indication: POST LAMINECTOMY SYNDROME

REACTIONS (2)
  - Muscle spasms [Not Recovered/Not Resolved]
  - SARS-CoV-2 test positive [Unknown]

NARRATIVE: CASE EVENT DATE: 202104
